FAERS Safety Report 24292428 (Version 2)
Quarter: 2024Q3

REPORT INFORMATION
  Report Type: Spontaneous
  Country: US (occurrence: US)
  Receive Date: 20240906
  Receipt Date: 20240923
  Transmission Date: 20241017
  Serious: No
  Sender: ABBVIE
  Company Number: US-ABBVIE-5909330

PATIENT
  Sex: Female

DRUGS (2)
  1. SYNTHROID [Suspect]
     Active Substance: LEVOTHYROXINE SODIUM
     Indication: Hypothyroidism
     Dosage: FORM STRENGTH: 125 MICROGRAM
     Route: 048
     Dates: start: 2012, end: 20240907
  2. SYNTHROID [Suspect]
     Active Substance: LEVOTHYROXINE SODIUM
     Indication: Hypothyroidism
     Dosage: FORM STRENGTH: 50 MICROGRAM
     Route: 048
     Dates: start: 20240907

REACTIONS (18)
  - Blood thyroid stimulating hormone increased [Unknown]
  - Amenorrhoea [Recovering/Resolving]
  - Diarrhoea [Recovering/Resolving]
  - Tinnitus [Recovering/Resolving]
  - Irritability [Recovering/Resolving]
  - Incorrect dose administered [Unknown]
  - Weight increased [Recovering/Resolving]
  - Illness [Recovering/Resolving]
  - Unevaluable event [Recovering/Resolving]
  - Heart rate increased [Recovering/Resolving]
  - Palpitations [Recovering/Resolving]
  - Nervousness [Recovering/Resolving]
  - Chills [Recovering/Resolving]
  - Piloerection [Recovering/Resolving]
  - Hot flush [Recovering/Resolving]
  - Erythema [Recovering/Resolving]
  - Fatigue [Recovering/Resolving]
  - Wrong technique in product usage process [Unknown]

NARRATIVE: CASE EVENT DATE: 20240801
